FAERS Safety Report 14330491 (Version 1)
Quarter: 2017Q4

REPORT INFORMATION
  Report Type: Spontaneous
  Country: JP (occurrence: JP)
  Receive Date: 20171227
  Receipt Date: 20171227
  Transmission Date: 20180321
  Serious: Yes (Other)
  Sender: FDA-Public Use
  Company Number: JP-VISTAPHARM, INC.-VER201712-001567

PATIENT
  Age: 71 Year
  Sex: Female
  Weight: 56.4 kg

DRUGS (3)
  1. PREDNISOLONE. [Suspect]
     Active Substance: PREDNISOLONE
     Indication: GRANULOMATOSIS WITH POLYANGIITIS
  2. PREDNISOLONE. [Suspect]
     Active Substance: PREDNISOLONE
  3. VOGLIBOSE [Concomitant]
     Active Substance: VOGLIBOSE
     Indication: DIABETES MELLITUS

REACTIONS (2)
  - Diabetes mellitus [Unknown]
  - Pneumatosis intestinalis [Recovering/Resolving]
